FAERS Safety Report 5091207-1 (Version None)
Quarter: 2006Q3

REPORT INFORMATION
  Report Type: 
  Country: None (occurrence: None)
  Receive Date: 20060825
  Receipt Date: 20060825
  Transmission Date: 20061208
  Serious: Yes (Other)
  Sender: FDA-Public Use
  Company Number: None

PATIENT
  Age: 59 Year
  Sex: Female
  Weight: 61.2356 kg

DRUGS (1)
  1. BONIVA [Suspect]
     Indication: BONE DISORDER
     Dosage: 1-150MG TAB MONTHLY PO
     Route: 048
     Dates: start: 20060413, end: 20060828

REACTIONS (2)
  - MUSCULAR WEAKNESS [None]
  - RESPIRATORY DISORDER [None]
